FAERS Safety Report 24372520 (Version 3)
Quarter: 2024Q4

REPORT INFORMATION
  Report Type: Report from Study
  Country: US (occurrence: US)
  Receive Date: 20240927
  Receipt Date: 20241021
  Transmission Date: 20250115
  Serious: Yes (Hospitalization, Other)
  Sender: ABBVIE
  Company Number: US-ABBVIE-5937009

PATIENT
  Sex: Male
  Weight: 81 kg

DRUGS (1)
  1. CREON [Suspect]
     Active Substance: PANCRELIPASE AMYLASE\PANCRELIPASE LIPASE\PANCRELIPASE PROTEASE
     Indication: Pancreatic failure
     Dosage: 24000 TAKE 2 CAPSULES BY MOUTH TWICE DAILY WITH BREAKFAST AND DINNER, FORM STRENGTH: 24000 FORM S...
     Route: 048
     Dates: start: 2009

REACTIONS (3)
  - Nerve block [Recovered/Resolved]
  - Hepatic infection [Unknown]
  - Bile duct stone [Unknown]

NARRATIVE: CASE EVENT DATE: 20240101
